FAERS Safety Report 10499407 (Version 1)
Quarter: 2014Q4

REPORT INFORMATION
  Report Type: Spontaneous
  Country: US (occurrence: US)
  Receive Date: 20141006
  Receipt Date: 20141006
  Transmission Date: 20150528
  Serious: No
  Sender: FDA-Public Use
  Company Number: US-AMGEN INC.-USASP2014044213

PATIENT
  Sex: Male

DRUGS (3)
  1. TRELSTAR [Concomitant]
     Active Substance: TRIPTORELIN PAMOATE
     Indication: HORMONE THERAPY
     Dosage: UNK
  2. XGEVA [Suspect]
     Active Substance: DENOSUMAB
     Indication: PRODUCT USED FOR UNKNOWN INDICATION
     Dosage: UNK
     Route: 065
  3. JEVTANA [Concomitant]
     Active Substance: CABAZITAXEL
     Indication: PROSTATIC SPECIFIC ANTIGEN ABNORMAL
     Dosage: UNK

REACTIONS (4)
  - Prostatic specific antigen increased [Unknown]
  - Fatigue [Unknown]
  - Decreased appetite [Unknown]
  - Constipation [Unknown]
